FAERS Safety Report 17217444 (Version 1)
Quarter: 2019Q4

REPORT INFORMATION
  Report Type: Spontaneous
  Country: CA (occurrence: CA)
  Receive Date: 20191231
  Receipt Date: 20191231
  Transmission Date: 20200122
  Serious: Yes (Other)
  Sender: FDA-Public Use
  Company Number: CA-UCBSA-2019055431

PATIENT
  Age: 69 Year
  Sex: Female

DRUGS (5)
  1. KEPPRA [Suspect]
     Active Substance: LEVETIRACETAM
     Indication: PRODUCT USED FOR UNKNOWN INDICATION
     Route: 048
  2. SUBLINOX [Concomitant]
     Active Substance: ZOLPIDEM TARTRATE
     Indication: PRODUCT USED FOR UNKNOWN INDICATION
     Dosage: UNK
  3. ATIVAN [Concomitant]
     Active Substance: LORAZEPAM
     Indication: PRODUCT USED FOR UNKNOWN INDICATION
     Dosage: UNK
  4. BEVACIZUMAB. [Suspect]
     Active Substance: BEVACIZUMAB
     Indication: RADIATION NECROSIS
     Dosage: 660 MILLIGRAM, EV 3 WEEKS
     Route: 042
  5. OXYBUTYNIN. [Suspect]
     Active Substance: OXYBUTYNIN CHLORIDE
     Indication: PRODUCT USED FOR UNKNOWN INDICATION
     Dosage: 5 MILLIGRAM, 3X/DAY (TID)

REACTIONS (21)
  - Anxiety [Not Recovered/Not Resolved]
  - Off label use [Unknown]
  - Chest pain [Not Recovered/Not Resolved]
  - Epistaxis [Not Recovered/Not Resolved]
  - Spasmodic dysphonia [Not Recovered/Not Resolved]
  - Alopecia [Not Recovered/Not Resolved]
  - Hypoaesthesia [Not Recovered/Not Resolved]
  - Lower respiratory tract congestion [Not Recovered/Not Resolved]
  - Urinary incontinence [Not Recovered/Not Resolved]
  - Wheelchair user [Not Recovered/Not Resolved]
  - Intentional product use issue [Unknown]
  - Eastern Cooperative Oncology Group performance status improved [Not Recovered/Not Resolved]
  - Hemiparesis [Not Recovered/Not Resolved]
  - Initial insomnia [Not Recovered/Not Resolved]
  - Headache [Not Recovered/Not Resolved]
  - Blood pressure increased [Not Recovered/Not Resolved]
  - Blood pressure systolic increased [Not Recovered/Not Resolved]
  - Micturition urgency [Not Recovered/Not Resolved]
  - Sinus disorder [Not Recovered/Not Resolved]
  - Movement disorder [Not Recovered/Not Resolved]
  - Nausea [Not Recovered/Not Resolved]
